FAERS Safety Report 16779843 (Version 1)
Quarter: 2019Q3

REPORT INFORMATION
  Report Type: Spontaneous
  Country: US (occurrence: US)
  Receive Date: 20190906
  Receipt Date: 20190906
  Transmission Date: 20191005
  Serious: Yes (Other)
  Sender: FDA-Public Use
  Company Number: US-BAYER-2019-157658

PATIENT
  Age: 53 Year
  Sex: Male
  Weight: 79.4 kg

DRUGS (7)
  1. MERCAPTOPURINE. [Concomitant]
     Active Substance: MERCAPTOPURINE
     Dosage: 50 MG, QD
  2. TESTOSTERONE CYPIONATE. [Concomitant]
     Active Substance: TESTOSTERONE CYPIONATE
     Dosage: 200 MG/ML, OW
     Route: 030
  3. CIPRO [Suspect]
     Active Substance: CIPROFLOXACIN HYDROCHLORIDE
     Indication: DIARRHOEA
     Dosage: UNK
     Dates: start: 201902
  4. PLANTAGO PSYLLIUM SEED [Concomitant]
     Dosage: 3.4 G, QD
     Route: 048
  5. PREDNISONE. [Concomitant]
     Active Substance: PREDNISONE
     Dosage: 10 MG, UNK
     Route: 048
  6. ALPRAZOLAM. [Concomitant]
     Active Substance: ALPRAZOLAM
     Dosage: 0.25 MG, UNK
     Route: 048
  7. LOPERAMIDE [Concomitant]
     Active Substance: LOPERAMIDE
     Indication: DIARRHOEA
     Dosage: 2 MG, QID
     Route: 048

REACTIONS (10)
  - Drug ineffective for unapproved indication [None]
  - Hyperplasia [Not Recovered/Not Resolved]
  - Mucosal erosion [None]
  - Off label use [None]
  - Gastrointestinal mucosa hyperaemia [None]
  - Pouchitis [Not Recovered/Not Resolved]
  - Proctitis [None]
  - Oedema mucosal [None]
  - Intestinal ulcer [Not Recovered/Not Resolved]
  - Rectal ulcer [None]
